FAERS Safety Report 17647703 (Version 1)
Quarter: 2020Q2

REPORT INFORMATION
  Report Type: Spontaneous
  Country: US (occurrence: US)
  Receive Date: 20200408
  Receipt Date: 20200408
  Transmission Date: 20200713
  Serious: No
  Sender: FDA-Public Use
  Company Number: US-ASTRAZENECA-2020SE42203

PATIENT
  Sex: Female

DRUGS (2)
  1. PRILOSEC OTC [Suspect]
     Active Substance: OMEPRAZOLE MAGNESIUM
     Dosage: UNKNOWN
     Route: 048
  2. FASENRA [Suspect]
     Active Substance: BENRALIZUMAB
     Indication: ASTHMA
     Dosage: EVERY EIGHT WEEKS
     Route: 058
     Dates: start: 20191014

REACTIONS (2)
  - Chest pain [Recovered/Resolved]
  - Drug ineffective [Unknown]
